FAERS Safety Report 10065420 (Version 1)
Quarter: 2014Q2

REPORT INFORMATION
  Report Type: Spontaneous
  Country: FR (occurrence: FR)
  Receive Date: 20140408
  Receipt Date: 20140408
  Transmission Date: 20141212
  Serious: Yes (Hospitalization)
  Sender: FDA-Public Use
  Company Number: FR-GLAXOSMITHKLINE-B0981839A

PATIENT
  Age: 101 Year
  Sex: Male

DRUGS (1)
  1. ARIXTRA [Suspect]
     Indication: PRODUCT USED FOR UNKNOWN INDICATION
     Dosage: 2.5MG UNKNOWN
     Route: 065
     Dates: start: 20111222, end: 20120312

REACTIONS (6)
  - Cerebral haemorrhage [Unknown]
  - Diplopia [Unknown]
  - Headache [Unknown]
  - Subdural haematoma [Unknown]
  - Fall [Unknown]
  - Incorrect drug administration duration [Unknown]
